FAERS Safety Report 5075205-X (Version None)
Quarter: 2006Q3

REPORT INFORMATION
  Report Type: 
  Country: None (occurrence: None)
  Receive Date: 20060804
  Receipt Date: 20060720
  Transmission Date: 20061208
  Serious: No
  Sender: FDA-Public Use
  Company Number: US018008

PATIENT
  Age: 16 Year
  Sex: Female

DRUGS (1)
  1. ACTIQ (SUGAR-FREE) [Suspect]
     Dates: start: 20040424, end: 20040424

REACTIONS (2)
  - ACCIDENTAL EXPOSURE [None]
  - SOMNOLENCE [None]
